FAERS Safety Report 7356008-X (Version None)
Quarter: 2011Q1

REPORT INFORMATION
  Report Type: 
  Country: None (occurrence: None)
  Receive Date: 20110316
  Receipt Date: 20110304
  Transmission Date: 20110831
  Serious: No
  Sender: FDA-Public Use
  Company Number: US-ABBOTT-11P-163-0709901-00

PATIENT
  Sex: Male
  Weight: 93.07 kg

DRUGS (8)
  1. METOPROLOL SUCCINATE [Concomitant]
     Indication: CARDIAC DISORDER
  2. TRILIPIX [Suspect]
     Indication: BLOOD CHOLESTEROL
     Dates: start: 20101101
  3. ASPIRIN [Concomitant]
     Indication: PRODUCT USED FOR UNKNOWN INDICATION
  4. PLAVIX [Concomitant]
     Indication: CORONARY ARTERIAL STENT INSERTION
  5. DIPYRIDAMOLE [Concomitant]
     Indication: ANTICOAGULANT THERAPY
  6. UNKNOWN MULTIVITAMIN [Concomitant]
     Indication: PRODUCT USED FOR UNKNOWN INDICATION
  7. ENABLEX [Concomitant]
     Indication: DYSURIA
  8. METFORMIN HCL [Concomitant]
     Indication: BLOOD GLUCOSE ABNORMAL

REACTIONS (1)
  - JOINT LOCK [None]
